FAERS Safety Report 8372682-3 (Version None)
Quarter: 2012Q2

REPORT INFORMATION
  Report Type: 
  Country: None (occurrence: None)
  Receive Date: 20120521
  Receipt Date: 20120508
  Transmission Date: 20120825
  Serious: Yes (Hospitalization)
  Sender: FDA-Public Use
  Company Number: US-UCBSA-054178

PATIENT
  Age: 66 Year
  Sex: Female
  Weight: 105.23 kg

DRUGS (10)
  1. OMEPRAZOLE [Suspect]
     Indication: DYSPHAGIA
     Dosage: DOSE:2 PILLS; FORM: PILLS, 20 MG
     Dates: start: 20101110, end: 20101111
  2. FUROSEMIDE [Concomitant]
     Dates: start: 20101105
  3. OXYCONTIN [Concomitant]
     Dates: start: 20101105
  4. PANTOPRAZOLE [Concomitant]
     Dates: start: 20101117
  5. AMITRIPTYLINE HCL [Concomitant]
     Dosage: 25 MG, 3 TABLETS AT BEDTIME
     Dates: start: 20101008
  6. BACLOFEN [Concomitant]
     Dates: start: 20101008
  7. LISINOPRIL [Concomitant]
     Dates: start: 20101105
  8. LORAZEPAM [Concomitant]
     Dates: start: 20101105
  9. GLYBURIDE [Concomitant]
     Dates: start: 20101105
  10. OXYCODONE HCL AND ACETAMINOPHEN [Concomitant]
     Dosage: 10/325 MG MG , I TABLET EVERY 4 HOURS NOT TO EXCEED 3 DAILY
     Dates: start: 20101105

REACTIONS (3)
  - SKIN ULCER [None]
  - STEVENS-JOHNSON SYNDROME [None]
  - CELLULITIS [None]
